FAERS Safety Report 4354108-X (Version None)
Quarter: 2004Q2

REPORT INFORMATION
  Report Type: 
  Country: None (occurrence: None)
  Receive Date: 20040506
  Receipt Date: 20040428
  Transmission Date: 20050107
  Serious: Yes (Other)
  Sender: FDA-Public Use
  Company Number: GB-JNJFOC-20040303304

PATIENT
  Sex: Male
  Weight: 27.5 kg

DRUGS (1)
  1. CONCERTA [Suspect]
     Route: 049

REACTIONS (5)
  - CHEST PAIN [None]
  - CIRCULATORY COLLAPSE [None]
  - DYSPNOEA [None]
  - PAIN IN EXTREMITY [None]
  - PALLOR [None]
